FAERS Safety Report 4731238-1 (Version None)
Quarter: 2005Q3

REPORT INFORMATION
  Report Type: 
  Country: None (occurrence: None)
  Receive Date: 20050801
  Receipt Date: 20050718
  Transmission Date: 20060218
  Serious: Yes (Other)
  Sender: FDA-Public Use
  Company Number: GXKR2005GB01339

PATIENT
  Age: 71 Year
  Sex: Female

DRUGS (8)
  1. VERAPAMIL [Suspect]
     Dosage: 120 MG, BID, ORAL
     Route: 048
  2. ATENOLOL [Suspect]
     Dosage: 50 MG, BID, ORAL
     Route: 048
  3. FUROSEMIDE (FUROSEMIDE) [Concomitant]
  4. COMPARATOR ESOMEPRAZOLE (ESOMEPRAZOLE) [Concomitant]
  5. CLOPIDOGREL BISULFATE [Concomitant]
  6. AMLODIPINE [Concomitant]
  7. SIMVASTATIN [Concomitant]
  8. ITRACONAZOLE [Concomitant]

REACTIONS (2)
  - BRADYCARDIA [None]
  - LOSS OF CONSCIOUSNESS [None]
